FAERS Safety Report 16555788 (Version 1)
Quarter: 2019Q3

REPORT INFORMATION
  Report Type: Spontaneous
  Country: FR (occurrence: FR)
  Receive Date: 20190710
  Receipt Date: 20190710
  Transmission Date: 20191004
  Serious: Yes (Hospitalization)
  Sender: FDA-Public Use
  Company Number: FR-MYLANLABS-2019M1063652

PATIENT
  Age: 8 Year
  Sex: Female
  Weight: 38 kg

DRUGS (1)
  1. METHOTREXATE MYLAN [Suspect]
     Active Substance: METHOTREXATE SODIUM
     Indication: LEUKAEMIA
     Dosage: UNK
     Route: 042
     Dates: start: 20180904, end: 20180904

REACTIONS (1)
  - Drug level increased [Recovered/Resolved]

NARRATIVE: CASE EVENT DATE: 20180908
